FAERS Safety Report 9843986 (Version 2)
Quarter: 2014Q3

REPORT INFORMATION
  Report Type: Spontaneous
  Country: US (occurrence: US)
  Receive Date: 20140126
  Receipt Date: 20140826
  Transmission Date: 20150326
  Serious: Yes (Hospitalization)
  Sender: FDA-Public Use
  Company Number: US-009507513-1401USA011473

PATIENT
  Sex: Female
  Weight: 43.7 kg

DRUGS (1)
  1. NUVARING [Suspect]
     Active Substance: ETHINYL ESTRADIOL\ETONOGESTREL
     Indication: CONTRACEPTION
     Dosage: EVERY 3 WEEKS
     Route: 067
     Dates: start: 2006, end: 20110128

REACTIONS (5)
  - Coagulation factor VIII level increased [Unknown]
  - Deep vein thrombosis [Recovered/Resolved]
  - Embolism venous [Unknown]
  - Angioplasty [Unknown]
  - Thrombolysis [Unknown]

NARRATIVE: CASE EVENT DATE: 20110101
